FAERS Safety Report 6868755-4 (Version None)
Quarter: 2010Q3

REPORT INFORMATION
  Report Type: 
  Country: None (occurrence: None)
  Receive Date: 20100722
  Receipt Date: 20080605
  Transmission Date: 20110219
  Serious: Yes (Other)
  Sender: FDA-Public Use
  Company Number: US-PFIZER INC-2008048788

PATIENT
  Sex: Female
  Weight: 64.9 kg

DRUGS (5)
  1. CHANTIX [Suspect]
     Indication: SMOKING CESSATION THERAPY
     Dates: start: 20080427, end: 20080501
  2. DILANTIN [Concomitant]
     Indication: CONVULSION
  3. CARTIA XT [Concomitant]
     Indication: HYPERTENSION
  4. LISINOPRIL [Concomitant]
     Indication: HYPERTENSION
  5. CENTRUM SILVER [Concomitant]

REACTIONS (2)
  - AGGRESSION [None]
  - NERVOUSNESS [None]
